FAERS Safety Report 15950312 (Version 1)
Quarter: 2019Q1

REPORT INFORMATION
  Report Type: Report from Study
  Country: US (occurrence: US)
  Receive Date: 20190212
  Receipt Date: 20190212
  Transmission Date: 20190417
  Serious: No
  Sender: FDA-Public Use
  Company Number: PHEH2019US006095

PATIENT
  Sex: Male

DRUGS (1)
  1. ZORTRESS [Suspect]
     Active Substance: EVEROLIMUS
     Indication: MACULAR DEGENERATION
     Dosage: 0.5 MG, TWO CAPS (1MG ) IN THE MORNING AND 4 CAPS (2MG) IN THE EVENING
     Route: 048

REACTIONS (1)
  - Infection [Unknown]
